FAERS Safety Report 23794882 (Version 9)
Quarter: 2024Q4

REPORT INFORMATION
  Report Type: Spontaneous
  Country: US (occurrence: US)
  Receive Date: 20240429
  Receipt Date: 20241104
  Transmission Date: 20250115
  Serious: No
  Sender: PFIZER
  Company Number: US-PFIZER INC-202400091760

PATIENT
  Age: 16 Year
  Sex: Male
  Weight: 90.703 kg

DRUGS (1)
  1. GENOTROPIN [Suspect]
     Active Substance: SOMATROPIN
     Indication: Growth disorder
     Dosage: 3 MG, DAILY
     Dates: start: 2024

REACTIONS (3)
  - Device breakage [Unknown]
  - Product packaging quantity issue [Unknown]
  - Drug dose omission by device [Unknown]

NARRATIVE: CASE EVENT DATE: 20240419
